FAERS Safety Report 5163440-1 (Version None)
Quarter: 2006Q4

REPORT INFORMATION
  Report Type: 
  Country: None (occurrence: None)
  Receive Date: 20061124
  Receipt Date: 20061107
  Transmission Date: 20070319
  Serious: Yes (Death, Hospitalization)
  Sender: FDA-Public Use
  Company Number: US-2006-009686

PATIENT
  Age: 66 Year
  Sex: Female

DRUGS (2)
  1. BETASERON [Suspect]
     Indication: MULTIPLE SCLEROSIS
     Dosage: UNK, UNK, SUBCUTANEOUS
     Route: 058
     Dates: start: 19931223, end: 20060208
  2. COUMADIN [Concomitant]

REACTIONS (3)
  - CARDIAC DISORDER [None]
  - DISEASE PROGRESSION [None]
  - SECONDARY PROGRESSIVE MULTIPLE SCLEROSIS [None]
